FAERS Safety Report 8949673 (Version 2)
Quarter: 2012Q4

REPORT INFORMATION
  Report Type: Report from Study
  Country: US (occurrence: US)
  Receive Date: 20121206
  Receipt Date: 20121214
  Transmission Date: 20130627
  Serious: Yes (Death)
  Sender: FDA-Public Use
  Company Number: US-SANOFI-AVENTIS-2012SA088359

PATIENT
  Age: 65 Year
  Sex: Male
  Weight: 114 kg

DRUGS (6)
  1. ELOXATIN [Suspect]
     Indication: COLORECTAL CANCER
     Route: 041
     Dates: start: 20120208, end: 20120208
  2. ELOXATIN [Suspect]
     Indication: COLORECTAL CANCER
     Route: 041
     Dates: start: 20121031, end: 20121031
  3. BEVACIZUMAB [Suspect]
     Indication: COLORECTAL CANCER
     Route: 042
     Dates: start: 20120208, end: 20120208
  4. BEVACIZUMAB [Suspect]
     Indication: COLORECTAL CANCER
     Dosage: drug held due to 3+ proteinuria
     Route: 042
  5. CAMPTOSAR [Suspect]
     Indication: COLORECTAL CANCER
     Route: 042
     Dates: start: 20120208, end: 20120208
  6. CAMPTOSAR [Suspect]
     Indication: COLORECTAL CANCER
     Route: 042
     Dates: start: 20121031, end: 20121031

REACTIONS (1)
  - Death [Fatal]
